FAERS Safety Report 25148766 (Version 1)
Quarter: 2025Q2

REPORT INFORMATION
  Report Type: Spontaneous
  Country: BG (occurrence: BG)
  Receive Date: 20250402
  Receipt Date: 20250402
  Transmission Date: 20250716
  Serious: Yes (Life-Threatening, Hospitalization)
  Sender: ACCORD
  Company Number: BG-MLMSERVICE-20250317-PI445661-00101-1

PATIENT
  Age: 62 Year
  Sex: Male

DRUGS (4)
  1. FLUOROURACIL [Suspect]
     Active Substance: FLUOROURACIL
     Indication: Squamous cell carcinoma of the oral cavity
     Dosage: 6 CONSECUTIVE COURSES, ONCE A WEEK
     Dates: start: 2023, end: 202307
  2. CISPLATIN [Suspect]
     Active Substance: CISPLATIN
     Indication: Squamous cell carcinoma of the oral cavity
     Dosage: 6 CONSECUTIVE COURSES, ONCE A WEEK
     Dates: start: 2023, end: 202307
  3. CETUXIMAB [Suspect]
     Active Substance: CETUXIMAB
     Indication: Squamous cell carcinoma of the oral cavity
     Dosage: 6 CONSECUTIVE COURSES, ONCE A WEEK, SIGNLE INTRAVENOUS INFUSION
     Dates: start: 2023, end: 202307
  4. SODIUM CHLORIDE [Concomitant]
     Active Substance: SODIUM CHLORIDE
     Dates: start: 2023, end: 202307

REACTIONS (2)
  - Peripheral artery thrombosis [Recovering/Resolving]
  - Off label use [Unknown]

NARRATIVE: CASE EVENT DATE: 20230701
